FAERS Safety Report 23592387 (Version 2)
Quarter: 2024Q1

REPORT INFORMATION
  Report Type: Spontaneous
  Country: US (occurrence: US)
  Receive Date: 20240304
  Receipt Date: 20240306
  Transmission Date: 20240410
  Serious: Yes (Other)
  Sender: FDA-Public Use
  Company Number: US-SANOFI-01957819

PATIENT
  Age: 54 Year
  Sex: Female

DRUGS (2)
  1. LANTUS SOLOSTAR [Suspect]
     Active Substance: INSULIN GLARGINE
     Indication: Type 2 diabetes mellitus
     Dosage: 70 U, QD (2 35 UNITS OF INSULIN INSTEAD OF 1)
     Route: 058
  2. LANTUS SOLOSTAR [Suspect]
     Active Substance: INSULIN GLARGINE
     Dosage: TWICE AS MUCH, BID

REACTIONS (8)
  - Diabetes mellitus inadequate control [Unknown]
  - Injection site haemorrhage [Unknown]
  - Injection site bruising [Unknown]
  - Weight increased [Unknown]
  - Salivary gland disorder [Unknown]
  - Insulin resistance [Unknown]
  - Inappropriate schedule of product administration [Unknown]
  - Needle issue [Unknown]
